FAERS Safety Report 15276252 (Version 1)
Quarter: 2018Q3

REPORT INFORMATION
  Report Type: Spontaneous
  Country: US (occurrence: US)
  Receive Date: 20180728
  Receipt Date: 20180728
  Transmission Date: 20181010
  Serious: No
  Sender: FDA-Public Use
  Company Number: None

PATIENT
  Age: 57 Year
  Weight: 105.75 kg

DRUGS (7)
  1. HCTZ 50 [Suspect]
     Active Substance: HYDROCHLOROTHIAZIDE
     Indication: HYPERTENSION
     Route: 048
     Dates: start: 20000101, end: 20130820
  2. MULTI VITAMIN [Concomitant]
     Active Substance: VITAMINS
  3. METOPROLOL 50MG [Suspect]
     Active Substance: METOPROLOL
     Indication: HYPERTENSION
     Route: 048
  4. SCRAM?INTERNAL PARASITE CLEANSE [Concomitant]
  5. SERRAGOLD (SERRAPEPTASE) [Concomitant]
  6. ALL HERBAL [Concomitant]
  7. NATTO K [Concomitant]

REACTIONS (6)
  - Quality of life decreased [None]
  - Factor V Leiden mutation [None]
  - Vaginal discharge [None]
  - Antinuclear antibody positive [None]
  - Product contamination [None]
  - Vaginal haemorrhage [None]
